FAERS Safety Report 8928578 (Version 1)
Quarter: 2012Q4

REPORT INFORMATION
  Report Type: 
  Country: US (occurrence: US)
  Receive Date: 20121128
  Receipt Date: 20121128
  Transmission Date: 20130627
  Serious: No
  Sender: FDA-Public Use
  Company Number: US-009507513-1211USA010108

PATIENT
  Sex: Female

DRUGS (1)
  1. ZETIA [Suspect]
     Indication: BLOOD CHOLESTEROL INCREASED
     Dosage: 1 DF, qd
     Route: 048
     Dates: start: 20120921, end: 201210

REACTIONS (2)
  - Muscle spasms [Recovered/Resolved]
  - Pain of skin [Recovered/Resolved]
